FAERS Safety Report 5879776-2 (Version None)
Quarter: 2008Q3

REPORT INFORMATION
  Report Type: 
  Country: None (occurrence: None)
  Receive Date: 20080912
  Receipt Date: 20080909
  Transmission Date: 20090109
  Serious: Yes (Other)
  Sender: FDA-Public Use
  Company Number: GB-ROCHE-585445

PATIENT
  Sex: Female
  Weight: 95.3 kg

DRUGS (6)
  1. ORLISTAT [Suspect]
     Indication: OBESITY
     Route: 048
     Dates: start: 20080701
  2. BECLOMETHASONE DIPROPIONATE [Concomitant]
     Indication: ASTHMA
     Route: 055
  3. ALBUTEROL SPIROS [Concomitant]
     Indication: ASTHMA
     Route: 055
  4. VENLAFAXINE HCL [Concomitant]
     Indication: DEPRESSION
     Route: 048
  5. LANSOPRAZOLE [Concomitant]
     Route: 048
  6. ZOPICLONE [Concomitant]
     Dosage: REPORTED AS SLEEPING TABLETS
     Route: 048

REACTIONS (3)
  - ABORTION SPONTANEOUS [None]
  - MATERNAL DRUGS AFFECTING FOETUS [None]
  - PREGNANCY [None]
